FAERS Safety Report 16943884 (Version 2)
Quarter: 2019Q4

REPORT INFORMATION
  Report Type: Spontaneous
  Country: GB (occurrence: GB)
  Receive Date: 20191022
  Receipt Date: 20191022
  Transmission Date: 20200122
  Serious: Yes (Other)
  Sender: FDA-Public Use
  Company Number: GB-CHEPLA-C20192589

PATIENT
  Age: 47 Year
  Sex: Male

DRUGS (8)
  1. DENOSUMAB [Concomitant]
     Active Substance: DENOSUMAB
     Indication: PROPHYLAXIS
  2. ETOPOPHOS [Suspect]
     Active Substance: ETOPOSIDE PHOSPHATE
     Indication: PRODUCT USED FOR UNKNOWN INDICATION
     Route: 065
     Dates: start: 20181010
  3. PEGYLATED GRANULOCYTE COLONY STIMULATING FACTOR [Concomitant]
     Indication: PROPHYLAXIS
  4. PREDNISOLONE. [Concomitant]
     Active Substance: PREDNISOLONE
     Indication: PROPHYLAXIS
     Dates: start: 201903
  5. COTRIMOXAZOLE [Concomitant]
     Active Substance: SULFAMETHOXAZOLE\TRIMETHOPRIM
     Indication: PROPHYLAXIS
  6. CARBOPLATIN. [Suspect]
     Active Substance: CARBOPLATIN
     Indication: PRODUCT USED FOR UNKNOWN INDICATION
     Route: 065
     Dates: start: 20181010
  7. THYROXINE [Concomitant]
     Active Substance: LEVOTHYROXINE
  8. TECENTRIQ [Suspect]
     Active Substance: ATEZOLIZUMAB
     Indication: PRODUCT USED FOR UNKNOWN INDICATION
     Route: 065
     Dates: start: 20181010

REACTIONS (4)
  - Cough [Unknown]
  - Alopecia [Unknown]
  - Hypothyroidism [Unknown]
  - Dyspnoea [Unknown]

NARRATIVE: CASE EVENT DATE: 201903
